FAERS Safety Report 14057793 (Version 1)
Quarter: 2017Q4

REPORT INFORMATION
  Report Type: Spontaneous
  Country: DK (occurrence: DK)
  Receive Date: 20171006
  Receipt Date: 20171006
  Transmission Date: 20180321
  Serious: Yes (Disabling)
  Sender: FDA-Public Use
  Company Number: DK-GLAXOSMITHKLINE-DK2017150802

PATIENT
  Age: 33 Year
  Sex: Female

DRUGS (3)
  1. SINGULAIR [Concomitant]
     Active Substance: MONTELUKAST SODIUM
     Indication: BRONCHIAL HYPERREACTIVITY
     Dosage: 10 MG, QD
     Route: 048
     Dates: start: 20080826
  2. SERETIDE [Suspect]
     Active Substance: FLUTICASONE PROPIONATE\SALMETEROL XINAFOATE
     Indication: ASTHMA
     Dosage: 1 DF, BID
     Route: 055
  3. CIPRALEX [Concomitant]
     Active Substance: ESCITALOPRAM OXALATE
     Indication: DEPRESSED MOOD
     Dosage: 10 MG, UNK
     Route: 048
     Dates: start: 20060503

REACTIONS (24)
  - Headache [Unknown]
  - Night sweats [Unknown]
  - Early satiety [Unknown]
  - Osteopenia [Unknown]
  - Chest discomfort [Unknown]
  - Cortisol decreased [Unknown]
  - Myalgia [Unknown]
  - Nausea [Unknown]
  - Abdominal pain [Unknown]
  - Dyspepsia [Recovered/Resolved]
  - Abdominal discomfort [Unknown]
  - Depressed mood [Unknown]
  - Weight decreased [Recovered/Resolved]
  - Gastritis [Unknown]
  - Asthenia [Unknown]
  - Persistent depressive disorder [Unknown]
  - Fatigue [Unknown]
  - Musculoskeletal stiffness [Unknown]
  - Visual impairment [Unknown]
  - Weight gain poor [Recovered/Resolved]
  - Tremor [Unknown]
  - Osteoporosis [Not Recovered/Not Resolved]
  - Secondary adrenocortical insufficiency [Unknown]
  - Back pain [Recovered/Resolved]

NARRATIVE: CASE EVENT DATE: 200605
